FAERS Safety Report 21883932 (Version 1)
Quarter: 2023Q1

REPORT INFORMATION
  Report Type: Other
  Country: SE (occurrence: SE)
  Receive Date: 20230119
  Receipt Date: 20230119
  Transmission Date: 20230417
  Serious: Yes (Other)
  Sender: FDA-Public Use
  Company Number: SE-CELLTRION INC.-2023SE000604

PATIENT

DRUGS (5)
  1. INFLIXIMAB [Suspect]
     Active Substance: INFLIXIMAB
     Indication: Crohn^s disease
     Dosage: 400 MILLIGRAM, EVERY 8 WEEKS
     Route: 042
     Dates: start: 20220615, end: 20221025
  2. HYDROXOCOBALAMIN CHLORIDE [Concomitant]
     Dosage: 1 MG, EVERY 2 MONTHS
     Route: 058
  3. CHOLESTYRAMINE [Concomitant]
     Active Substance: CHOLESTYRAMINE
     Dosage: UNK
     Route: 048
  4. EUTHYROX [Concomitant]
     Active Substance: LEVOTHYROXINE SODIUM
     Dosage: 150 MG, QD
     Route: 048
  5. COLESTIPOL [Concomitant]
     Active Substance: COLESTIPOL
     Dosage: UNK
     Route: 048

REACTIONS (2)
  - Systemic lupus erythematosus [Recovering/Resolving]
  - Overdose [Unknown]

NARRATIVE: CASE EVENT DATE: 20220807
